FAERS Safety Report 25036360 (Version 1)
Quarter: 2025Q1

REPORT INFORMATION
  Report Type: Spontaneous
  Country: JP (occurrence: JP)
  Receive Date: 20250304
  Receipt Date: 20250304
  Transmission Date: 20250409
  Serious: Yes (Other)
  Sender: MERCK SHARP & DOHME LLC
  Company Number: JP-MSD-M2022-10892

PATIENT
  Age: 7 Decade
  Sex: Female

DRUGS (5)
  1. KEYTRUDA [Suspect]
     Active Substance: PEMBROLIZUMAB
     Indication: Uterine cancer
     Route: 041
     Dates: start: 20220308, end: 2022
  2. KEYTRUDA [Suspect]
     Active Substance: PEMBROLIZUMAB
     Indication: Uterine cancer
     Dosage: DOSE DESCRIPTION : 200 MILLIGRAM, Q3W?DAILY DOSE : 9.4 MILLIGRAM?REGIMEN DOSE : 200  MILLIGRAM
     Route: 041
  3. LENVATINIB MESYLATE [Suspect]
     Active Substance: LENVATINIB MESYLATE
     Indication: Uterine cancer
     Dosage: DOSE DESCRIPTION : 20 MILLIGRAM, QD?DAILY DOSE : 20 MILLIGRAM?CONCENTRATION: 10 MILLIGRAM?REGIMEN...
     Route: 048
     Dates: start: 20220308, end: 20220311
  4. LENVATINIB MESYLATE [Suspect]
     Active Substance: LENVATINIB MESYLATE
     Indication: Uterine cancer
     Dosage: DOSE DESCRIPTION : 20 MILLIGRAM, QD?DAILY DOSE : 20 MILLIGRAM
     Route: 048
     Dates: start: 20220315, end: 202204
  5. LENVATINIB MESYLATE [Suspect]
     Active Substance: LENVATINIB MESYLATE
     Indication: Uterine cancer
     Dosage: DOSE DESCRIPTION : 20 MILLIGRAM, QD?DAILY DOSE : 20 MILLIGRAM
     Route: 048

REACTIONS (6)
  - Hypothalamo-pituitary disorder [Recovered/Resolved]
  - Blood corticotrophin decreased [Recovered/Resolved]
  - Arthralgia [Recovering/Resolving]
  - Thyroid disorder [Recovered/Resolved]
  - Urticaria [Recovered/Resolved]
  - Inappropriate schedule of product administration [Unknown]

NARRATIVE: CASE EVENT DATE: 20220309
